FAERS Safety Report 21924850 (Version 2)
Quarter: 2023Q1

REPORT INFORMATION
  Report Type: Spontaneous
  Country: US (occurrence: US)
  Receive Date: 20230130
  Receipt Date: 20230228
  Transmission Date: 20230417
  Serious: No
  Sender: FDA-Public Use
  Company Number: US-BIOGEN-2022BI01163278

PATIENT
  Age: 59 Year
  Sex: Female

DRUGS (3)
  1. VUMERITY [Suspect]
     Active Substance: DIROXIMEL FUMARATE
     Indication: Multiple sclerosis
     Route: 050
     Dates: start: 20221019
  2. VUMERITY [Suspect]
     Active Substance: DIROXIMEL FUMARATE
     Dosage: MD TOOK 120 MG DAILY BY MOUTH 7 DAYS THEN TOOK 462 MG TWICE DAILY BY MOUTH.
     Route: 050
     Dates: start: 20221012, end: 20221018
  3. VUMERITY [Suspect]
     Active Substance: DIROXIMEL FUMARATE
     Dosage: MD TOOK 120 MG DAILY BY MOUTH 7 DAYS THEN TOOK 462 MG TWICE DAILY BY MOUTH.
     Route: 050
     Dates: start: 20221019

REACTIONS (5)
  - General physical health deterioration [Not Recovered/Not Resolved]
  - Balance disorder [Not Recovered/Not Resolved]
  - Diarrhoea [Unknown]
  - Flushing [Unknown]
  - Rhinorrhoea [Unknown]

NARRATIVE: CASE EVENT DATE: 20221001
